FAERS Safety Report 4888515-3 (Version None)
Quarter: 2005Q4

REPORT INFORMATION
  Report Type: 
  Country: None (occurrence: None)
  Receive Date: 20051215
  Receipt Date: 20050426
  Transmission Date: 20060501
  Serious: Yes (Hospitalization, Other)
  Sender: FDA-Public Use
  Company Number: 2005066179

PATIENT
  Sex: Female

DRUGS (7)
  1. BEXTRA [Suspect]
     Indication: ILL-DEFINED DISORDER
     Route: 065
  2. PROPAFENONE HCL [Concomitant]
  3. LEVOTHYROXINE SODIUM [Concomitant]
  4. ESOMEPRAZOLE (ESOMEPRAZOLE) [Concomitant]
  5. WARFARIN SODIUM [Concomitant]
  6. VITAMINS (VITAMINS) [Concomitant]
  7. MAGNESIUM (MAGNESIUM) [Concomitant]

REACTIONS (6)
  - ATRIAL FIBRILLATION [None]
  - DIZZINESS [None]
  - DYSPNOEA [None]
  - FALL [None]
  - HEART RATE ABNORMAL [None]
  - HYPERTENSION [None]
